FAERS Safety Report 23589682 (Version 1)
Quarter: 2024Q1

REPORT INFORMATION
  Report Type: Spontaneous
  Country: AU (occurrence: AU)
  Receive Date: 20240304
  Receipt Date: 20240304
  Transmission Date: 20240410
  Serious: Yes (Hospitalization)
  Sender: FDA-Public Use
  Company Number: AU-NOVOPROD-1181936

PATIENT
  Sex: Male

DRUGS (1)
  1. SEMAGLUTIDE [Suspect]
     Active Substance: SEMAGLUTIDE
     Indication: Product used for unknown indication
     Dosage: 2.4MG QW

REACTIONS (3)
  - Deformity thorax [Recovered/Resolved]
  - Pneumothorax [Recovered/Resolved]
  - Abdominal pain [Recovered/Resolved]
